FAERS Safety Report 9904017 (Version 2)
Quarter: 2014Q1

REPORT INFORMATION
  Report Type: Spontaneous
  Country: US (occurrence: US)
  Receive Date: 20140218
  Receipt Date: 20140313
  Transmission Date: 20141002
  Serious: No
  Sender: FDA-Public Use
  Company Number: US-BIOGENIDEC-2014BI012229

PATIENT
  Age: 41 Year
  Sex: Male

DRUGS (1)
  1. TECFIDERA [Suspect]
     Indication: RELAPSING-REMITTING MULTIPLE SCLEROSIS
     Dates: start: 201304, end: 201310

REACTIONS (2)
  - Drug ineffective [Recovered/Resolved]
  - Multiple sclerosis relapse [Recovered/Resolved]
